FAERS Safety Report 20190132 (Version 2)
Quarter: 2021Q4

REPORT INFORMATION
  Report Type: Report from Study
  Country: US (occurrence: US)
  Receive Date: 20211215
  Receipt Date: 20211227
  Transmission Date: 20220303
  Serious: No
  Sender: FDA-Public Use
  Company Number: US-INCYTE CORPORATION-2021IN011150

PATIENT

DRUGS (2)
  1. JAKAFI [Suspect]
     Active Substance: RUXOLITINIB
     Indication: Myelofibrosis
     Dosage: 20 MILLIGRAM, BID
     Route: 048
     Dates: start: 20211129
  2. JAKAFI [Suspect]
     Active Substance: RUXOLITINIB
     Dosage: BID
     Route: 048
     Dates: start: 20211214

REACTIONS (5)
  - Fatigue [Unknown]
  - Abdominal pain upper [Unknown]
  - Confusional state [Unknown]
  - White blood cell count increased [Unknown]
  - Diarrhoea [Unknown]
